FAERS Safety Report 19121119 (Version 1)
Quarter: 2021Q2

REPORT INFORMATION
  Report Type: Spontaneous
  Country: US (occurrence: US)
  Receive Date: 20210412
  Receipt Date: 20210412
  Transmission Date: 20210717
  Serious: Yes (Hospitalization)
  Sender: FDA-Public Use
  Company Number: None

PATIENT
  Age: 39 Year
  Sex: Female

DRUGS (3)
  1. AZATHIOPRINE. [Concomitant]
     Active Substance: AZATHIOPRINE
  2. PREDNISONE. [Concomitant]
     Active Substance: PREDNISONE
  3. ORILISSA [Suspect]
     Active Substance: ELAGOLIX SODIUM
     Indication: ENDOMETRIOSIS
     Dosage: ?          QUANTITY:2 PILLS;?
     Route: 048
     Dates: start: 20200903, end: 20201216

REACTIONS (6)
  - Jaundice [None]
  - Fatigue [None]
  - Hepatitis [None]
  - Chromaturia [None]
  - Hepatic enzyme increased [None]
  - Nausea [None]

NARRATIVE: CASE EVENT DATE: 20201216
